FAERS Safety Report 11467851 (Version 1)
Quarter: 2015Q3

REPORT INFORMATION
  Report Type: Spontaneous
  Country: JP (occurrence: JP)
  Receive Date: 20150908
  Receipt Date: 20150908
  Transmission Date: 20151125
  Serious: Yes (Other)
  Sender: FDA-Public Use
  Company Number: JP-SUN PHARMACEUTICAL INDUSTRIES LTD-2015R1-102650

PATIENT
  Age: 65 Year
  Sex: Male

DRUGS (7)
  1. ZOLEDRONIC ACID [Suspect]
     Active Substance: ZOLEDRONIC ACID
     Indication: PRODUCT USED FOR UNKNOWN INDICATION
     Dosage: UNK
     Route: 065
  2. PREDNISONE. [Suspect]
     Active Substance: PREDNISONE
     Indication: PROSTATE CANCER
     Dosage: UNK
     Route: 065
     Dates: start: 200409
  3. ESTRAMUSTINE PHOSPHATE [Suspect]
     Active Substance: ESTRAMUSTINE PHOSPHATE
     Indication: PROSTATIC SPECIFIC ANTIGEN INCREASED
     Dosage: UNK
     Route: 065
  4. TEGAFUR-URACIL [Suspect]
     Active Substance: TEGAFUR\URACIL
     Indication: PRODUCT USED FOR UNKNOWN INDICATION
     Dosage: UNK
     Route: 065
  5. DOCETAXEL. [Suspect]
     Active Substance: DOCETAXEL
     Indication: PROSTATE CANCER
     Dosage: UNK
     Route: 065
     Dates: start: 200409
  6. DOCETAXEL. [Suspect]
     Active Substance: DOCETAXEL
     Indication: PROSTATE CANCER
     Dosage: UNK
     Route: 065
  7. DOCETAXEL. [Suspect]
     Active Substance: DOCETAXEL
     Indication: PROSTATE CANCER
     Dosage: UNK
     Route: 065

REACTIONS (9)
  - Metastases to bone [Not Recovered/Not Resolved]
  - Oedema peripheral [Unknown]
  - Septic shock [Unknown]
  - Constipation [Unknown]
  - Prostatic specific antigen increased [Recovering/Resolving]
  - Pneumonia bacterial [Unknown]
  - Therapeutic response decreased [Unknown]
  - Subileus [Unknown]
  - Neutropenia [Unknown]
